FAERS Safety Report 8709080 (Version 4)
Quarter: 2014Q1

REPORT INFORMATION
  Report Type: Report from Study
  Country: JP (occurrence: JP)
  Receive Date: 20120806
  Receipt Date: 20140207
  Transmission Date: 20141002
  Serious: Yes (Other)
  Sender: FDA-Public Use
  Company Number: JP-ROCHE-1097552

PATIENT
  Age: 86 Year
  Sex: Male

DRUGS (12)
  1. RANIBIZUMAB [Suspect]
     Indication: AGE-RELATED MACULAR DEGENERATION
     Route: 050
     Dates: start: 20100411
  2. RANIBIZUMAB [Suspect]
     Route: 050
     Dates: start: 20100509
  3. RANIBIZUMAB [Suspect]
     Route: 050
     Dates: start: 20100628
  4. RANIBIZUMAB [Suspect]
     Route: 050
     Dates: start: 20120726
  5. RANIBIZUMAB [Suspect]
     Route: 050
     Dates: start: 20100927
  6. RANIBIZUMAB [Suspect]
     Route: 050
     Dates: start: 20101025
  7. RANIBIZUMAB [Suspect]
     Route: 050
     Dates: start: 20101129
  8. RANIBIZUMAB [Suspect]
     Route: 050
     Dates: start: 20110131
  9. RANIBIZUMAB [Suspect]
     Route: 050
     Dates: start: 20110228
  10. HEPARIN [Suspect]
     Indication: DIALYSIS
     Route: 065
     Dates: start: 20111206
  11. CRAVIT [Concomitant]
  12. PRANOPROFEN [Concomitant]
     Route: 065
     Dates: start: 201004, end: 201102

REACTIONS (2)
  - Retinal haemorrhage [Not Recovered/Not Resolved]
  - Retinal detachment [Not Recovered/Not Resolved]
